FAERS Safety Report 10146174 (Version 1)
Quarter: 2014Q2

REPORT INFORMATION
  Report Type: Spontaneous
  Country: US (occurrence: None)
  Receive Date: 20140430
  Receipt Date: 20140430
  Transmission Date: 20141212
  Serious: Yes (Hospitalization)
  Sender: FDA-Public Use
  Company Number: None

PATIENT
  Age: 21 Year
  Sex: Male
  Weight: 74.84 kg

DRUGS (2)
  1. MDMA [Suspect]
  2. ALCOHOL [Suspect]

REACTIONS (8)
  - Confusional state [None]
  - Agitation [None]
  - Hyperthermia [None]
  - Convulsion [None]
  - Rhabdomyolysis [None]
  - International normalised ratio increased [None]
  - Hepatotoxicity [None]
  - Liver injury [None]
